FAERS Safety Report 16368122 (Version 3)
Quarter: 2019Q3

REPORT INFORMATION
  Report Type: Report from Study
  Country: US (occurrence: US)
  Receive Date: 20190529
  Receipt Date: 20190904
  Transmission Date: 20191004
  Serious: No
  Sender: FDA-Public Use
  Company Number: PHEH2019US022653

PATIENT
  Sex: Female

DRUGS (3)
  1. FENTANYL. [Concomitant]
     Active Substance: FENTANYL
     Indication: PRODUCT USED FOR UNKNOWN INDICATION
     Route: 065
  2. COSENTYX [Suspect]
     Active Substance: SECUKINUMAB
     Dosage: 150 MG QMO
     Route: 058
  3. COSENTYX [Suspect]
     Active Substance: SECUKINUMAB
     Indication: PSORIATIC ARTHROPATHY
     Dosage: UNK, QMO
     Route: 058

REACTIONS (8)
  - Fatigue [Recovering/Resolving]
  - Blood potassium increased [Recovered/Resolved]
  - Eye infection [Unknown]
  - Peripheral swelling [Unknown]
  - Limb discomfort [Unknown]
  - Arthritis [Recovering/Resolving]
  - Dermatitis contact [Recovering/Resolving]
  - Back disorder [Recovering/Resolving]
